FAERS Safety Report 16204955 (Version 1)
Quarter: 2019Q2

REPORT INFORMATION
  Report Type: Spontaneous
  Country: US (occurrence: US)
  Receive Date: 20190416
  Receipt Date: 20190416
  Transmission Date: 20190711
  Serious: Yes (Disabling)
  Sender: FDA-Public Use
  Company Number: US-009507513-1904USA006555

PATIENT
  Sex: Female

DRUGS (2)
  1. CARBIDOPA (+) LEVODOPA [Suspect]
     Active Substance: CARBIDOPA\LEVODOPA
  2. SINEMET [Suspect]
     Active Substance: CARBIDOPA\LEVODOPA
     Route: 048

REACTIONS (6)
  - Product availability issue [Unknown]
  - Myalgia [Not Recovered/Not Resolved]
  - Drug ineffective [Not Recovered/Not Resolved]
  - Movement disorder [Not Recovered/Not Resolved]
  - Product dose omission [Unknown]
  - Gait inability [Not Recovered/Not Resolved]
